FAERS Safety Report 6275514-2 (Version None)
Quarter: 2009Q3

REPORT INFORMATION
  Report Type: 
  Country: None (occurrence: None)
  Receive Date: 20090721
  Receipt Date: 20090709
  Transmission Date: 20100115
  Serious: Yes (Other)
  Sender: FDA-Public Use
  Company Number: US-PFIZER INC-2009215471

PATIENT
  Sex: Female
  Weight: 54.875 kg

DRUGS (5)
  1. GEODON [Suspect]
     Indication: BIPOLAR I DISORDER
     Dosage: UNK
     Dates: start: 20081101
  2. LAMICTAL [Concomitant]
     Dosage: 200 MG, 2X/DAY
     Dates: start: 20071001
  3. LORAZEPAM [Concomitant]
  4. TRAZODONE [Concomitant]
     Dosage: 25 MG, 1X/DAY
  5. TEMAZEPAM [Concomitant]

REACTIONS (3)
  - ANXIETY [None]
  - DISSOCIATIVE DISORDER [None]
  - OBSESSIVE-COMPULSIVE DISORDER [None]
